FAERS Safety Report 21213156 (Version 1)
Quarter: 2022Q3

REPORT INFORMATION
  Report Type: Spontaneous
  Country: US (occurrence: US)
  Receive Date: 20220815
  Receipt Date: 20220815
  Transmission Date: 20221027
  Serious: No
  Sender: FDA-Public Use
  Company Number: US-ELI_LILLY_AND_COMPANY-US202208005897

PATIENT
  Sex: Female

DRUGS (2)
  1. ERBITUX [Suspect]
     Active Substance: CETUXIMAB
     Indication: Product used for unknown indication
     Dosage: UNK, OTHER (EVERY OTHER WEEK)
     Route: 065
     Dates: start: 20220719
  2. BRAFTOVI [Suspect]
     Active Substance: ENCORAFENIB
     Indication: Product used for unknown indication
     Dosage: 4 DOSAGE FORM, DAILY
     Route: 065
     Dates: start: 20220719

REACTIONS (2)
  - Alopecia [Not Recovered/Not Resolved]
  - Fatigue [Not Recovered/Not Resolved]
